FAERS Safety Report 8083310-9 (Version None)
Quarter: 2012Q1

REPORT INFORMATION
  Report Type: 
  Country: None (occurrence: None)
  Receive Date: 20120127
  Receipt Date: 20110201
  Transmission Date: 20120608
  Serious: No
  Sender: FDA-Public Use
  Company Number: US-ABBOTT-11P-163-0702594-00

PATIENT
  Sex: Female
  Weight: 86.26 kg

DRUGS (10)
  1. HUMIRA [Suspect]
     Indication: PSORIATIC ARTHROPATHY
     Dates: start: 20100101, end: 20101001
  2. HYDROCHLOROTHIAZIDE [Concomitant]
     Indication: HYPERTENSION
  3. DEXALANT [Concomitant]
     Indication: GASTROOESOPHAGEAL REFLUX DISEASE
  4. LISINOPRIL [Concomitant]
     Indication: HYPERTENSION
  5. ENDURAL [Concomitant]
     Indication: MIGRAINE
  6. METHOTREXATE [Suspect]
     Indication: PSORIATIC ARTHROPATHY
     Route: 058
     Dates: start: 20100101, end: 20101001
  7. ALLEGRA [Concomitant]
     Indication: SEASONAL ALLERGY
  8. OMEPRAZOLE [Concomitant]
     Indication: GASTROOESOPHAGEAL REFLUX DISEASE
  9. LEVOXYL [Concomitant]
     Indication: HYPOTHYROIDISM
  10. NEURONTIN [Concomitant]
     Indication: RESTLESS LEGS SYNDROME

REACTIONS (5)
  - PSORIASIS [None]
  - COELIAC DISEASE [None]
  - MALAISE [None]
  - HEADACHE [None]
  - FATIGUE [None]
